FAERS Safety Report 7659600-8 (Version None)
Quarter: 2011Q3

REPORT INFORMATION
  Report Type: 
  Country: None (occurrence: None)
  Receive Date: 20110805
  Receipt Date: 20110801
  Transmission Date: 20111222
  Serious: Yes (Death, Other)
  Sender: FDA-Public Use
  Company Number: ES-MERCK-1103ESP00017

PATIENT
  Age: 60 Year
  Sex: Male

DRUGS (4)
  1. AMPHOTERICIN B [Suspect]
     Indication: BLOOD CULTURE POSITIVE
     Route: 065
  2. CANCIDAS [Suspect]
     Indication: BLOOD CULTURE POSITIVE
     Route: 042
  3. CANCIDAS [Suspect]
     Route: 042
  4. CILASTATIN SODIUM AND IMIPENEM [Concomitant]
     Indication: FEBRILE NEUTROPENIA
     Route: 042

REACTIONS (7)
  - DEATH [None]
  - HEPATOSPLENIC CANDIDIASIS [None]
  - ACUTE MYELOID LEUKAEMIA [None]
  - RENAL FAILURE [None]
  - GRAFT COMPLICATION [None]
  - GRAFT VERSUS HOST DISEASE [None]
  - BONE MARROW TRANSPLANT [None]
